FAERS Safety Report 19291265 (Version 1)
Quarter: 2021Q2

REPORT INFORMATION
  Report Type: Report from Study
  Country: IT (occurrence: IT)
  Receive Date: 20210523
  Receipt Date: 20210523
  Transmission Date: 20210717
  Serious: Yes (Other)
  Sender: FDA-Public Use
  Company Number: IT-TEVA-2021-IT-1913103

PATIENT
  Age: 75 Year
  Sex: Male
  Weight: 110 kg

DRUGS (4)
  1. OXALIPLATINO ACCORD HEALTHCARE [Suspect]
     Active Substance: OXALIPLATIN
     Indication: HER2 POSITIVE GASTRIC CANCER
     Dosage: 85 MG/M2
     Route: 042
     Dates: start: 20210323
  2. DOCETAXEL HIKMA * [Suspect]
     Active Substance: DOCETAXEL
     Indication: HER2 POSITIVE GASTRIC CANCER
     Dosage: 50 MG/M2
     Route: 042
     Dates: start: 20210323, end: 20210408
  3. FLUOROURACILE AHCL 50 MG/ML, SOLUZIONE PER INIEZIONE O INFUSIONE [Suspect]
     Active Substance: FLUOROURACIL SODIUM
     Indication: HER2 POSITIVE GASTRIC CANCER
     Dosage: 2600 MCG/M2
     Route: 042
     Dates: start: 20210323, end: 20210408
  4. CALCIO LEVOFOLINATO TEVA 100 MG POLVERE PER SOLUZIONE PER INFUSIONE [Suspect]
     Active Substance: LEVOLEUCOVORIN CALCIUM
     Indication: HER2 POSITIVE GASTRIC CANCER
     Dosage: 200 MG/M2
     Route: 042
     Dates: start: 20210323, end: 20210408

REACTIONS (3)
  - Malaise [Recovering/Resolving]
  - Thrombophlebitis [Recovering/Resolving]
  - Asthenia [Recovering/Resolving]

NARRATIVE: CASE EVENT DATE: 20210408
